FAERS Safety Report 5916570-8 (Version None)
Quarter: 2008Q4

REPORT INFORMATION
  Report Type: 
  Country: None (occurrence: None)
  Receive Date: 20081013
  Receipt Date: 20080925
  Transmission Date: 20090506
  Serious: Yes (Other)
  Sender: FDA-Public Use
  Company Number: PHHY2008BR24048

PATIENT
  Age: 44 Year
  Sex: Female
  Weight: 96 kg

DRUGS (4)
  1. EXFORGE [Suspect]
     Indication: HYPERTENSION
     Dosage: 1 DF, QD
     Route: 048
  2. METFORMIN HCL [Concomitant]
     Indication: BLOOD INSULIN INCREASED
     Dosage: 1 TABLET IN MORNING
     Route: 048
     Dates: start: 20080801
  3. GANFORT [Concomitant]
     Indication: GLAUCOMA
     Dosage: 1 TEAR AT NIGHT
  4. PURAN T4 [Concomitant]
     Indication: THYROID DISORDER
     Dosage: 1 TABLET DAILY
     Route: 048

REACTIONS (3)
  - HYPERTENSION [None]
  - OEDEMA PERIPHERAL [None]
  - URINARY RETENTION [None]
